FAERS Safety Report 23587074 (Version 3)
Quarter: 2024Q1

REPORT INFORMATION
  Report Type: Spontaneous
  Country: BR (occurrence: BR)
  Receive Date: 20240301
  Receipt Date: 20240313
  Transmission Date: 20240410
  Serious: Yes (Hospitalization)
  Sender: FDA-Public Use
  Company Number: BR-JNJFOC-20240264361

PATIENT
  Age: 31 Year
  Sex: Female
  Weight: 75 kg

DRUGS (3)
  1. SIMPONI [Suspect]
     Active Substance: GOLIMUMAB
     Indication: Colitis ulcerative
     Dosage: 50.00 MG / 0.50 ML
     Route: 058
     Dates: start: 20231002
  2. SIMPONI [Suspect]
     Active Substance: GOLIMUMAB
     Route: 058
  3. DESVENLAFAXINE [Concomitant]
     Active Substance: DESVENLAFAXINE
     Route: 048

REACTIONS (5)
  - Colitis ulcerative [Unknown]
  - Device defective [Unknown]
  - Product administration error [Unknown]
  - Off label use [Unknown]
  - Underdose [Unknown]

NARRATIVE: CASE EVENT DATE: 20240125
